FAERS Safety Report 8577980-6 (Version None)
Quarter: 2012Q3

REPORT INFORMATION
  Report Type: 
  Country: None (occurrence: None)
  Receive Date: 20120725
  Receipt Date: 20120712
  Transmission Date: 20120928
  Serious: Yes (Hospitalization, Other)
  Sender: FDA-Public Use
  Company Number: AUR-APL-2012-02681

PATIENT
  Age: 15 Year
  Sex: Female

DRUGS (5)
  1. LAMOTRIGINE [Suspect]
     Indication: EPILEPSY
     Dosage: 12.5 MG (25 MG, 1 IN 2 D), ORAL, 25 MG (25 MG, 1 IN 1 D), ORAL, 50 MG (25 MG, 2 IN 1 D)
     Route: 048
     Dates: start: 20120507, end: 20120520
  2. LAMOTRIGINE [Suspect]
     Indication: CONVULSION
     Dosage: 12.5 MG (25 MG, 1 IN 2 D), ORAL, 25 MG (25 MG, 1 IN 1 D), ORAL, 50 MG (25 MG, 2 IN 1 D)
     Route: 048
     Dates: start: 20120507, end: 20120520
  3. LAMOTRIGINE [Suspect]
     Indication: EPILEPSY
     Dosage: 12.5 MG (25 MG, 1 IN 2 D), ORAL, 25 MG (25 MG, 1 IN 1 D), ORAL, 50 MG (25 MG, 2 IN 1 D)
     Route: 048
     Dates: start: 20120521, end: 20120601
  4. LAMOTRIGINE [Suspect]
     Indication: CONVULSION
     Dosage: 12.5 MG (25 MG, 1 IN 2 D), ORAL, 25 MG (25 MG, 1 IN 1 D), ORAL, 50 MG (25 MG, 2 IN 1 D)
     Route: 048
     Dates: start: 20120521, end: 20120601
  5. VALPROATE SODIUM [Concomitant]

REACTIONS (5)
  - CONVULSION [None]
  - PYREXIA [None]
  - PLATELET COUNT DECREASED [None]
  - STEVENS-JOHNSON SYNDROME [None]
  - CONJUNCTIVAL DISORDER [None]
